FAERS Safety Report 6875800-9 (Version None)
Quarter: 2010Q3

REPORT INFORMATION
  Report Type: 
  Country: None (occurrence: None)
  Receive Date: 20100727
  Receipt Date: 20070521
  Transmission Date: 20110219
  Serious: No
  Sender: FDA-Public Use
  Company Number: US-PFIZER INC-2007041463

PATIENT
  Sex: Female
  Weight: 47.727 kg

DRUGS (3)
  1. CELEBREX [Suspect]
     Indication: ARTHRITIS
     Dates: start: 20070517
  2. ASACOL [Concomitant]
     Indication: CROHN'S DISEASE
  3. PROTONIX [Concomitant]
     Indication: DYSPEPSIA

REACTIONS (1)
  - DRUG INEFFECTIVE [None]
